FAERS Safety Report 4604611-X (Version None)
Quarter: 2005Q2

REPORT INFORMATION
  Report Type: 
  Country: None (occurrence: None)
  Receive Date: 20050223
  Receipt Date: 20050103
  Transmission Date: 20051028
  Serious: No
  Sender: FDA-Public Use
  Company Number: PHEH2005US00452

PATIENT
  Age: 33 Year
  Sex: Female

DRUGS (2)
  1. ZELNORM [Suspect]
     Indication: IRRITABLE BOWEL SYNDROME
     Dosage: 6 MG, BID,
     Dates: start: 20040801
  2. YASMIN [Suspect]
     Indication: CONTRACEPTION

REACTIONS (2)
  - BREAST TENDERNESS [None]
  - NIPPLE PAIN [None]
